FAERS Safety Report 10032666 (Version 1)
Quarter: 2014Q1

REPORT INFORMATION
  Report Type: Spontaneous
  Country: US (occurrence: US)
  Receive Date: 20140324
  Receipt Date: 20140324
  Transmission Date: 20141002
  Serious: Yes (Hospitalization)
  Sender: FDA-Public Use
  Company Number: US-GLAXOSMITHKLINE-A1066372A

PATIENT
  Age: 67 Year
  Sex: Male

DRUGS (11)
  1. VOTRIENT [Suspect]
     Indication: RENAL CANCER
     Dosage: 800MG PER DAY
     Route: 048
     Dates: start: 20140303
  2. TYLENOL # 3 [Concomitant]
  3. TERAZOSIN [Concomitant]
  4. NEXIUM [Concomitant]
  5. LEVOTHYROXINE [Concomitant]
  6. CITALOPRAM [Concomitant]
  7. DIAZEPAM [Concomitant]
  8. AMBIEN [Concomitant]
  9. DIOVAN [Concomitant]
  10. VITAMIN B 12 [Concomitant]
  11. VITAMIN B3 [Concomitant]

REACTIONS (4)
  - Lymphoma [Not Recovered/Not Resolved]
  - Thoracic cavity drainage [Unknown]
  - Investigation [Unknown]
  - Lung disorder [Not Recovered/Not Resolved]
